FAERS Safety Report 7015349-6 (Version None)
Quarter: 2010Q3

REPORT INFORMATION
  Report Type: 
  Country: None (occurrence: None)
  Receive Date: 20100922
  Receipt Date: 20100908
  Transmission Date: 20110219
  Serious: Yes (Death)
  Sender: FDA-Public Use
  Company Number: 017538

PATIENT
  Sex: Male

DRUGS (2)
  1. CIMZIA [Suspect]
     Indication: CROHN'S DISEASE
     Dosage: (400 MG 1X/MONTH SUBCUTANEOUS)
     Route: 058
     Dates: start: 20090401, end: 20100519
  2. GLEEVEC [Concomitant]

REACTIONS (3)
  - CHRONIC MYELOID LEUKAEMIA [None]
  - PNEUMONIA [None]
  - SUBDURAL HAEMATOMA [None]
